FAERS Safety Report 5005922-9 (Version None)
Quarter: 2006Q1

REPORT INFORMATION
  Report Type: 
  Country: None (occurrence: None)
  Receive Date: 20060320
  Receipt Date: 20050218
  Transmission Date: 20060701
  Serious: Yes (Other)
  Sender: FDA-Public Use
  Company Number: 2005-02-1274

PATIENT
  Sex: Male

DRUGS (2)
  1. PEG-INTRON [Suspect]
     Indication: HEPATITIS C
     Dates: start: 20041201, end: 20050216
  2. RIBASPHERE [Suspect]
     Indication: HEPATITIS C
     Dosage: ORAL
     Route: 048
     Dates: end: 20050216

REACTIONS (5)
  - EYE PRURITUS [None]
  - EYELID PTOSIS [None]
  - HEADACHE [None]
  - RETINAL HAEMORRHAGE [None]
  - VISUAL DISTURBANCE [None]
